FAERS Safety Report 8248600-5 (Version None)
Quarter: 2012Q1

REPORT INFORMATION
  Report Type: 
  Country: None (occurrence: None)
  Receive Date: 20120330
  Receipt Date: 20120321
  Transmission Date: 20120608
  Serious: Yes (Other)
  Sender: FDA-Public Use
  Company Number: US-ASTRAZENECA-2012SE19313

PATIENT
  Age: 53 Year
  Sex: Female

DRUGS (5)
  1. PRILOSEC [Suspect]
     Route: 048
  2. ZANTAC [Concomitant]
  3. NEXIUM [Suspect]
     Indication: GASTROOESOPHAGEAL REFLUX DISEASE
     Route: 048
  4. PAIN MEDICATION [Concomitant]
  5. MAGNESIUM SUPPLEMENTS [Concomitant]

REACTIONS (12)
  - MONOPLEGIA [None]
  - ARTHRALGIA [None]
  - TREMOR [None]
  - DYSPHAGIA [None]
  - INSOMNIA [None]
  - BONE PAIN [None]
  - DRUG INEFFECTIVE [None]
  - DRUG DOSE OMISSION [None]
  - APHAGIA [None]
  - PAIN IN EXTREMITY [None]
  - DYSPHONIA [None]
  - JOINT DISLOCATION [None]
